FAERS Safety Report 4772148-3 (Version None)
Quarter: 2005Q3

REPORT INFORMATION
  Report Type: 
  Country: None (occurrence: None)
  Receive Date: 20050919
  Receipt Date: 20050907
  Transmission Date: 20060218
  Serious: Yes (Death, Other)
  Sender: FDA-Public Use
  Company Number: US-JNJFOC-20050902412

PATIENT
  Age: 34 Year
  Sex: Female

DRUGS (2)
  1. FENTANYL [Suspect]
     Indication: INTENTIONAL MISUSE
     Route: 048
  2. ETHANOL [Suspect]
     Indication: INTENTIONAL MISUSE
     Route: 048

REACTIONS (5)
  - CARDIO-RESPIRATORY ARREST [None]
  - DRUG ABUSER [None]
  - DRUG SCREEN POSITIVE [None]
  - INTENTIONAL MISUSE [None]
  - PUPIL FIXED [None]
